FAERS Safety Report 6439971-0 (Version None)
Quarter: 2009Q4

REPORT INFORMATION
  Report Type: 
  Country: None (occurrence: None)
  Receive Date: 20091113
  Receipt Date: 20091103
  Transmission Date: 20100525
  Serious: Yes (Other)
  Sender: FDA-Public Use
  Company Number: FR-CELGENEUS-056-C5013-09070526

PATIENT
  Sex: Female
  Weight: 54 kg

DRUGS (14)
  1. CC-5013 [Suspect]
     Indication: NON-HODGKIN'S LYMPHOMA
     Route: 048
     Dates: start: 20090119, end: 20090804
  2. LEVOTHYROXINE SODIUM [Concomitant]
     Indication: HYPOTHYROIDISM
     Route: 048
     Dates: start: 20090610
  3. ORACILLINE [Concomitant]
     Indication: SPLENECTOMY
     Dosage: 2 X 10^6 IU
     Route: 048
     Dates: start: 20070701
  4. ZELITREX [Concomitant]
     Indication: CHEMOTHERAPY
     Route: 048
     Dates: start: 20080301
  5. TANGANIL [Concomitant]
     Indication: DIZZINESS
     Route: 048
  6. LOBAMINE [Concomitant]
     Route: 048
  7. SMELTA [Concomitant]
     Indication: DIARRHOEA
     Route: 048
  8. CACIT / VIT D3 [Concomitant]
     Indication: OSTEOPOROSIS
     Route: 048
  9. VOLTAREN [Concomitant]
     Indication: INFLAMMATION
     Route: 048
     Dates: start: 20090130, end: 20090208
  10. MOPRAL [Concomitant]
     Indication: PROPHYLAXIS
     Route: 048
     Dates: start: 20090130
  11. VASTAREL [Concomitant]
     Indication: VENOUS THROMBOSIS
     Route: 048
  12. INNOHEP [Concomitant]
     Route: 048
     Dates: start: 20090629
  13. KARDEGIC [Concomitant]
     Route: 048
     Dates: start: 20090805
  14. KEPPRA [Concomitant]
     Indication: EPILEPSY
     Route: 048
     Dates: start: 20090729

REACTIONS (1)
  - KAPOSI'S SARCOMA [None]
